FAERS Safety Report 6765822-0 (Version None)
Quarter: 2010Q2

REPORT INFORMATION
  Report Type: 
  Country: None (occurrence: None)
  Receive Date: 20100609
  Receipt Date: 20100527
  Transmission Date: 20101027
  Serious: Yes (Death)
  Sender: FDA-Public Use
  Company Number: A-US2010-36284

PATIENT
  Age: 63 Year
  Sex: Male

DRUGS (8)
  1. TRACLEER [Suspect]
     Indication: PULMONARY ARTERIAL HYPERTENSION
     Dosage: 125 MG, BID, ORAL, 62.5 MG, BID
     Route: 048
     Dates: start: 20080616, end: 20080916
  2. TRACLEER [Suspect]
     Indication: PULMONARY ARTERIAL HYPERTENSION
     Dosage: 125 MG, BID, ORAL, 62.5 MG, BID
     Route: 048
     Dates: start: 20080916, end: 20100424
  3. COLCHICINE (COLCHICINE) [Concomitant]
  4. LASIX [Concomitant]
  5. LACTULOSE [Concomitant]
  6. OMEPRAZOLE [Concomitant]
  7. BYETTA [Concomitant]
  8. METFORMIN HCL [Concomitant]

REACTIONS (2)
  - DISEASE COMPLICATION [None]
  - HEPATIC CIRRHOSIS [None]
